FAERS Safety Report 19096004 (Version 3)
Quarter: 2021Q2

REPORT INFORMATION
  Report Type: Spontaneous
  Country: FR (occurrence: FR)
  Receive Date: 20210406
  Receipt Date: 20210423
  Transmission Date: 20210717
  Serious: Yes (Death)
  Sender: FDA-Public Use
  Company Number: FR-TEVA-2021-FR-1898158

PATIENT
  Age: 51 Year
  Sex: Female

DRUGS (5)
  1. PREGABALIN. [Suspect]
     Active Substance: PREGABALIN
     Indication: SUBSTANCE USE
     Route: 065
  2. CODEINE [Suspect]
     Active Substance: CODEINE
     Indication: SUBSTANCE USE
     Route: 065
  3. METHADONE [Suspect]
     Active Substance: METHADONE HYDROCHLORIDE
     Indication: SUBSTANCE USE
     Route: 065
  4. MORPHINE [Suspect]
     Active Substance: MORPHINE
     Indication: SUBSTANCE USE
     Route: 065
  5. DIAZEPAM. [Suspect]
     Active Substance: DIAZEPAM
     Indication: SUBSTANCE USE
     Route: 065

REACTIONS (3)
  - Substance abuse [Fatal]
  - Asphyxia [Fatal]
  - Respiratory depression [Fatal]
